FAERS Safety Report 5501364-8 (Version None)
Quarter: 2007Q4

REPORT INFORMATION
  Report Type: 
  Country: None (occurrence: None)
  Receive Date: 20071026
  Receipt Date: 20071011
  Transmission Date: 20080405
  Serious: Yes (Hospitalization)
  Sender: FDA-Public Use
  Company Number: 162781ISR

PATIENT
  Age: 79 Year
  Sex: Female

DRUGS (1)
  1. QUININE [Suspect]
     Indication: MUSCLE SPASMS
     Dosage: (300 MG, AS REQUIRED)

REACTIONS (8)
  - CONTUSION [None]
  - DISSEMINATED INTRAVASCULAR COAGULATION [None]
  - DIZZINESS [None]
  - ECCHYMOSIS [None]
  - HAEMOPTYSIS [None]
  - HYPOTENSION [None]
  - MELAENA [None]
  - UROSEPSIS [None]
